FAERS Safety Report 16041827 (Version 1)
Quarter: 2019Q1

REPORT INFORMATION
  Report Type: Spontaneous
  Country: BR (occurrence: BR)
  Receive Date: 20190306
  Receipt Date: 20190306
  Transmission Date: 20190418
  Serious: Yes (Other)
  Sender: FDA-Public Use
  Company Number: BR-BRISTOL-MYERS SQUIBB COMPANY-BMS-2019-021686

PATIENT
  Sex: Female

DRUGS (1)
  1. GLIFAGE [Suspect]
     Active Substance: METFORMIN HYDROCHLORIDE
     Indication: BLOOD GLUCOSE FLUCTUATION
     Dosage: UNK
     Route: 065

REACTIONS (4)
  - Gait disturbance [Unknown]
  - Urinary incontinence [Unknown]
  - Thrombosis [Unknown]
  - Hypersensitivity [Unknown]
